FAERS Safety Report 9475836 (Version 2)
Quarter: 2013Q3

REPORT INFORMATION
  Report Type: Spontaneous
  Country: US (occurrence: US)
  Receive Date: 20130826
  Receipt Date: 20130912
  Transmission Date: 20140515
  Serious: No
  Sender: FDA-Public Use
  Company Number: US-PFIZER INC-2013244359

PATIENT
  Age: 79 Year
  Sex: Male
  Weight: 78.01 kg

DRUGS (5)
  1. PRISTIQ [Suspect]
     Indication: DEPRESSION
     Dosage: 50 MG, 1X/DAY, A.M.
     Route: 048
     Dates: start: 20130823
  2. PRISTIQ [Suspect]
     Indication: ANXIETY
  3. ATIVAN [Concomitant]
     Dosage: 2 MG, HS
  4. AMBIEN [Concomitant]
     Dosage: 10 MG, HS
  5. BUSPAR [Concomitant]
     Dosage: 30 MG, UNK

REACTIONS (10)
  - Hyperhidrosis [Recovering/Resolving]
  - Nausea [Recovered/Resolved]
  - Feeling abnormal [Not Recovered/Not Resolved]
  - Malaise [Not Recovered/Not Resolved]
  - Constipation [Not Recovered/Not Resolved]
  - Flatulence [Not Recovered/Not Resolved]
  - Eructation [Not Recovered/Not Resolved]
  - Hunger [Not Recovered/Not Resolved]
  - Asthenia [Recovered/Resolved]
  - Off label use [Unknown]
